FAERS Safety Report 25472910 (Version 1)
Quarter: 2025Q2

REPORT INFORMATION
  Report Type: Report from Study
  Country: US (occurrence: US)
  Receive Date: 20250624
  Receipt Date: 20250624
  Transmission Date: 20250716
  Serious: Yes (Other)
  Sender: ARGENX BVBA
  Company Number: US-ARGENX-2025-ARGX-US007937

PATIENT

DRUGS (1)
  1. VYVGART HYTRULO [Suspect]
     Active Substance: EFGARTIGIMOD ALFA\HYALURONIDASE-QVFC
     Indication: Myasthenia gravis
     Dosage: 1008 MG, 1/WEEK (11,200 MG/5.6 ML)
     Route: 058
     Dates: start: 20250602, end: 20250616

REACTIONS (7)
  - Asthenia [Unknown]
  - Sensation of foreign body [Unknown]
  - Hypoaesthesia [Unknown]
  - Pallor [Unknown]
  - Tachypnoea [Unknown]
  - Blood pressure decreased [Unknown]
  - Heart rate increased [Unknown]

NARRATIVE: CASE EVENT DATE: 20250616
